FAERS Safety Report 9714414 (Version 1)
Quarter: 2013Q4

REPORT INFORMATION
  Report Type: Spontaneous
  Country: US (occurrence: US)
  Receive Date: 20131126
  Receipt Date: 20131126
  Transmission Date: 20140711
  Serious: No
  Sender: FDA-Public Use
  Company Number: US-BIOGENIDEC-2013BI072408

PATIENT
  Age: 53 Year
  Sex: Female
  Weight: 72 kg

DRUGS (11)
  1. TECFIDERA [Suspect]
     Indication: MULTIPLE SCLEROSIS
     Dates: start: 201305
  2. TECFIDERA [Suspect]
     Indication: MULTIPLE SCLEROSIS
     Route: 048
     Dates: start: 20130524
  3. VITAMIN B12 [Concomitant]
  4. CALCIUM AND MAGNESIUM [Concomitant]
  5. VALTREX [Concomitant]
  6. ZOFRAN [Concomitant]
  7. NEXIUM [Concomitant]
  8. RENTIDINE [Concomitant]
  9. AMLODIPINE [Concomitant]
  10. BISOPRL/HCTZ [Concomitant]
  11. IBUPROFEN [Concomitant]

REACTIONS (9)
  - Amnesia [Unknown]
  - Depression [Not Recovered/Not Resolved]
  - Constipation [Not Recovered/Not Resolved]
  - Nausea [Not Recovered/Not Resolved]
  - Vomiting [Not Recovered/Not Resolved]
  - Diarrhoea [Not Recovered/Not Resolved]
  - White blood cell count decreased [Unknown]
  - Abdominal pain upper [Unknown]
  - Dyspepsia [Unknown]
